FAERS Safety Report 9462124 (Version 1)
Quarter: 2013Q3

REPORT INFORMATION
  Report Type: Spontaneous
  Country: US (occurrence: None)
  Receive Date: 20130815
  Receipt Date: 20130815
  Transmission Date: 20140515
  Serious: Yes (Hospitalization)
  Sender: FDA-Public Use
  Company Number: None

PATIENT
  Age: 58 Year
  Sex: Female
  Weight: 103.8 kg

DRUGS (5)
  1. HCTZ/LISINOPRIL [Suspect]
     Indication: HYPERTENSION
     Route: 048
  2. GLIPIZIDE [Concomitant]
  3. PRAVASTATIN [Concomitant]
  4. METOPROLOL [Concomitant]
  5. METFORMIN [Concomitant]

REACTIONS (2)
  - Pancreatitis acute [None]
  - Hypokalaemia [None]
